FAERS Safety Report 23191270 (Version 4)
Quarter: 2024Q2

REPORT INFORMATION
  Report Type: Spontaneous
  Country: JP (occurrence: JP)
  Receive Date: 20231116
  Receipt Date: 20240603
  Transmission Date: 20240715
  Serious: Yes (Hospitalization, Other)
  Sender: FDA-Public Use
  Company Number: JP-MSD-2311JPN001542J

PATIENT
  Age: 80 Year
  Sex: Female
  Weight: 54 kg

DRUGS (3)
  1. KEYTRUDA [Suspect]
     Active Substance: PEMBROLIZUMAB
     Indication: Uterine cancer
     Dosage: 200 MILLIGRAM
     Route: 041
     Dates: start: 20231010, end: 20231010
  2. LENVATINIB MESYLATE [Suspect]
     Active Substance: LENVATINIB MESYLATE
     Indication: Uterine cancer
     Dosage: 20 MILLIGRAM, QD
     Route: 048
     Dates: start: 20231010, end: 20231020
  3. LENVATINIB MESYLATE [Suspect]
     Active Substance: LENVATINIB MESYLATE
     Dosage: 10 MILLIGRAM, QD
     Route: 048
     Dates: start: 20231021, end: 20231026

REACTIONS (2)
  - Cholecystitis acute [Recovered/Resolved]
  - Immune-mediated pancytopenia [Recovered/Resolved]

NARRATIVE: CASE EVENT DATE: 20231026
